FAERS Safety Report 8197350-2 (Version None)
Quarter: 2012Q1

REPORT INFORMATION
  Report Type: 
  Country: None (occurrence: None)
  Receive Date: 20120309
  Receipt Date: 20120229
  Transmission Date: 20120608
  Serious: Yes (Hospitalization)
  Sender: FDA-Public Use
  Company Number: JP-ASTRAZENECA-2012SE07688

PATIENT
  Age: 71 Year
  Sex: Male
  Weight: 48 kg

DRUGS (44)
  1. MEPTIN AIR [Concomitant]
     Indication: ASTHMA
     Dosage: DOSE UNKNOWN
     Route: 055
  2. MUCOSTA [Concomitant]
     Indication: PEPTIC ULCER
     Dosage: DOSE UNKNOWN
     Route: 048
  3. LEVOFLOXACIN [Concomitant]
     Dosage: NUMBER OF SEPARATE DOSAGES UNKNOWN
     Route: 048
     Dates: start: 20110826, end: 20110905
  4. PREDNISOLONE [Concomitant]
     Indication: LUNG DISORDER
     Dosage: REGULAR USE NUMBER OF SEPARATE DOSAGES UNKNOWN
     Route: 048
     Dates: start: 20101209, end: 20101211
  5. METHYLPREDNISOLONE SODIUM SUCCINATE [Concomitant]
     Dosage: REGULAR USE NUMBER OF SEPARATE DOSAGES UNKNOWN
     Route: 065
     Dates: start: 20110715, end: 20110725
  6. METHYLPREDNISOLONE SODIUM SUCCINATE [Concomitant]
     Dosage: REGULAR USE NUMBER OF SEPARATE DOSAGES UNKNOWN
     Route: 065
     Dates: start: 20110715, end: 20110725
  7. ROCEPHIN [Concomitant]
     Dosage: REGULAR USE NUMBER OF SEPARATE DOSAGES UNKNOWN
     Route: 065
     Dates: start: 20110801, end: 20110811
  8. THEO-DUR [Concomitant]
     Indication: ASTHMA
     Dosage: DOSE UNKNOWN
     Route: 048
  9. MUCOSOLVAN L [Concomitant]
     Indication: CHRONIC OBSTRUCTIVE PULMONARY DISEASE
     Dosage: DOSE UNKNOWN
     Route: 048
  10. RABEPRAZOLE SODIUM [Concomitant]
     Indication: PEPTIC ULCER
     Dosage: DOSE UNKNOWN
     Route: 048
  11. PREDNISOLONE [Concomitant]
     Dosage: REGULAR USE NUMBER OF SEPARATE DOSAGES UNKNOWN
     Route: 048
     Dates: start: 20110106, end: 20110111
  12. FAMOTIDINE [Concomitant]
     Indication: PROPHYLAXIS AGAINST GASTROINTESTINAL ULCER
     Dosage: REGULAR USE NUMBER OF SEPARATE DOSAGES UNKNOWN
     Route: 048
     Dates: start: 20101209, end: 20101211
  13. METHYLPREDNISOLONE SODIUM SUCCINATE [Concomitant]
     Dosage: REGULAR USE NUMBER OF SEPARATE DOSAGES UNKNOWN
     Route: 065
     Dates: start: 20110714, end: 20110714
  14. ROCEPHIN [Concomitant]
     Indication: BRONCHITIS
     Dosage: REGULAR USE NUMBER OF SEPARATE DOSAGES UNKNOWN
     Route: 065
     Dates: start: 20110714, end: 20110720
  15. UNIPHYL LA [Concomitant]
     Indication: ASTHMA
     Dosage: DOSE UNKNOWN
     Route: 048
  16. LOXONIN [Concomitant]
     Indication: SPINAL COMPRESSION FRACTURE
     Dosage: DOSE UNKNOWN
     Route: 048
  17. LEVOFLOXACIN [Concomitant]
     Indication: BRONCHITIS
     Dosage: REGULAR USE NUMBER OF SEPARATE DOSAGES UNKNOWN
     Route: 048
     Dates: start: 20101204, end: 20101206
  18. PREDNISOLONE [Concomitant]
     Dosage: REGULAR USE NUMBER OF SEPARATE DOSAGES UNKNOWN
     Route: 048
     Dates: start: 20110816, end: 20110824
  19. METHYLPREDNISOLONE SODIUM SUCCINATE [Concomitant]
     Dosage: REGULAR USE NUMBER OF SEPARATE DOSAGES UNKNOWN
     Route: 065
     Dates: start: 20110714, end: 20110714
  20. METHYLPREDNISOLONE SODIUM SUCCINATE [Concomitant]
     Dosage: REGULAR USE NUMBER OF SEPARATE DOSAGES UNKNOWN
     Route: 065
     Dates: start: 20110714, end: 20110714
  21. METHYLPREDNISOLONE SODIUM SUCCINATE [Concomitant]
     Dosage: REGULAR USE NUMBER OF SEPARATE DOSAGES UNKNOWN
     Route: 065
     Dates: start: 20110811, end: 20110813
  22. METHYLPREDNISOLONE SODIUM SUCCINATE [Concomitant]
     Dosage: REGULAR USE NUMBER OF SEPARATE DOSAGES UNKNOWN
     Route: 065
     Dates: start: 20110811, end: 20110813
  23. RISEDRONATE SODIUM [Concomitant]
     Indication: OSTEOPOROSIS
     Dosage: DOSE UNKNOWN
     Route: 048
  24. PREDNISOLONE [Concomitant]
     Dosage: REGULAR USE NUMBER OF SEPARATE DOSAGES UNKNOWN
     Route: 048
     Dates: start: 20110825, end: 20110905
  25. METHYLPREDNISOLONE SODIUM SUCCINATE [Concomitant]
     Indication: ASTHMA
     Dosage: REGULAR USE NUMBER OF SEPARATE DOSAGES UNKNOWN
     Route: 065
     Dates: start: 20110106, end: 20110106
  26. ROCEPHIN [Concomitant]
     Dosage: REGULAR USE NUMBER OF SEPARATE DOSAGES UNKNOWN
     Route: 065
     Dates: start: 20110801, end: 20110811
  27. SPIRIVA [Concomitant]
     Indication: CHRONIC OBSTRUCTIVE PULMONARY DISEASE
     Dosage: DOSE UNKNOWN
     Route: 055
  28. ONON [Concomitant]
     Indication: ASTHMA
     Dosage: DOSE UNKNOWN
     Route: 048
  29. PREDNISOLONE [Concomitant]
     Dosage: REGULAR USE NUMBER OF SEPARATE DOSAGES UNKNOWN
     Route: 048
     Dates: start: 20110816, end: 20110824
  30. METHYLPREDNISOLONE SODIUM SUCCINATE [Concomitant]
     Indication: CHRONIC OBSTRUCTIVE PULMONARY DISEASE
     Dosage: REGULAR USE NUMBER OF SEPARATE DOSAGES UNKNOWN
     Route: 065
     Dates: start: 20110106, end: 20110106
  31. MEROPENEM [Concomitant]
     Indication: PNEUMONIA
     Dosage: REGULAR USE NUMBER OF SEPARATE DOSAGES UNKNOWN
     Route: 065
     Dates: start: 20110811, end: 20110822
  32. PREDNISOLONE [Concomitant]
     Indication: ASTHMA
     Dosage: REGULAR USE NUMBER OF SEPARATE DOSAGES UNKNOWN
     Route: 048
     Dates: start: 20101209, end: 20101211
  33. FAMOTIDINE [Concomitant]
     Dosage: REGULAR USE NUMBER OF SEPARATE DOSAGES UNKNOWN
     Route: 048
     Dates: start: 20110106, end: 20110111
  34. METHYLPREDNISOLONE SODIUM SUCCINATE [Concomitant]
     Dosage: REGULAR USE NUMBER OF SEPARATE DOSAGES UNKNOWN
     Route: 065
     Dates: start: 20110715, end: 20110725
  35. METHYLPREDNISOLONE SODIUM SUCCINATE [Concomitant]
     Dosage: REGULAR USE NUMBER OF SEPARATE DOSAGES UNKNOWN
     Route: 065
     Dates: start: 20110811, end: 20110813
  36. ZITHROMAX [Concomitant]
     Indication: PNEUMONIA
     Dosage: REGULAR USE NUMBER OF SEPARATE DOSAGES UNKNOWN
     Route: 048
     Dates: start: 20110811, end: 20110811
  37. ALFAROL [Concomitant]
     Indication: OSTEOPOROSIS
     Dosage: DOSE UNKNOWN
     Route: 048
  38. PREDNISOLONE [Concomitant]
     Dosage: REGULAR USE NUMBER OF SEPARATE DOSAGES UNKNOWN
     Route: 048
     Dates: start: 20110106, end: 20110111
  39. SYMBICORT [Suspect]
     Indication: ASTHMA
     Dosage: 4DF TWO TIMES A DAY
     Route: 055
     Dates: start: 20100902
  40. DEXTROMETHORPHAN HYDROBROMIDE [Concomitant]
     Indication: CHRONIC OBSTRUCTIVE PULMONARY DISEASE
     Dosage: DOSE UNKNOWN
     Route: 048
  41. PREDNISOLONE [Concomitant]
     Dosage: REGULAR USE NUMBER OF SEPARATE DOSAGES UNKNOWN
     Route: 048
     Dates: start: 20110825, end: 20110905
  42. METHYLPREDNISOLONE SODIUM SUCCINATE [Concomitant]
     Indication: LUNG DISORDER
     Dosage: REGULAR USE NUMBER OF SEPARATE DOSAGES UNKNOWN
     Route: 065
     Dates: start: 20110106, end: 20110106
  43. ROCEPHIN [Concomitant]
     Indication: PNEUMONIA
     Dosage: REGULAR USE NUMBER OF SEPARATE DOSAGES UNKNOWN
     Route: 065
     Dates: start: 20110714, end: 20110720
  44. DIART [Concomitant]
     Indication: CARDIAC FAILURE
     Dosage: NUMBER OF SEPARATE DOSAGES UNKNOWN
     Route: 048
     Dates: start: 20110813, end: 20110816

REACTIONS (7)
  - LUNG DISORDER [None]
  - CARDIAC FAILURE [None]
  - RESPIRATORY FAILURE [None]
  - BRONCHITIS [None]
  - CHRONIC OBSTRUCTIVE PULMONARY DISEASE [None]
  - PNEUMONIA [None]
  - ASTHMA [None]
